FAERS Safety Report 13084041 (Version 2)
Quarter: 2017Q1

REPORT INFORMATION
  Report Type: Spontaneous
  Country: US (occurrence: US)
  Receive Date: 20170104
  Receipt Date: 20170310
  Transmission Date: 20170428
  Serious: No
  Sender: FDA-Public Use
  Company Number: US-ASTRAZENECA-2016SF36860

PATIENT
  Sex: Male
  Weight: 111.1 kg

DRUGS (1)
  1. TUDORZA PRESSAIR [Suspect]
     Active Substance: ACLIDINIUM BROMIDE
     Indication: CHRONIC OBSTRUCTIVE PULMONARY DISEASE
     Dosage: 400 MCG ONE PUFF TWO TIMES A DAY
     Route: 055
     Dates: start: 2016

REACTIONS (4)
  - Drug dose omission [Unknown]
  - Memory impairment [Unknown]
  - Intentional device misuse [Unknown]
  - Device issue [Unknown]
